FAERS Safety Report 4362199-5 (Version None)
Quarter: 2004Q2

REPORT INFORMATION
  Report Type: 
  Country: None (occurrence: None)
  Receive Date: 20040521
  Receipt Date: 20040510
  Transmission Date: 20050107
  Serious: Yes (Disabling, Other)
  Sender: FDA-Public Use
  Company Number: 200411564EU

PATIENT
  Age: 34 Year
  Sex: Female

DRUGS (4)
  1. LANTUS [Suspect]
     Indication: DIABETES MELLITUS INSULIN-DEPENDENT
     Route: 058
     Dates: start: 20031001
  2. ASPIRIN [Concomitant]
     Route: 048
  3. CARDURA XL [Concomitant]
     Route: 048
  4. LIPITOR [Concomitant]
     Route: 048

REACTIONS (1)
  - VOMITING [None]
